FAERS Safety Report 24462529 (Version 1)
Quarter: 2024Q4

REPORT INFORMATION
  Report Type: Spontaneous
  Country: CH (occurrence: CH)
  Receive Date: 20241018
  Receipt Date: 20241018
  Transmission Date: 20250114
  Serious: Yes (Other)
  Sender: RANBAXY
  Company Number: CH-SUN PHARMACEUTICAL INDUSTRIES LTD-2024R1-473471

PATIENT
  Age: 70 Year
  Sex: Female

DRUGS (2)
  1. CLOBETASOL [Suspect]
     Active Substance: CLOBETASOL
     Indication: Acute generalised exanthematous pustulosis
     Dosage: UNK
     Route: 061
  2. PREDNISONE [Suspect]
     Active Substance: PREDNISONE
     Indication: Acute generalised exanthematous pustulosis
     Dosage: 1 MILLIGRAM/KILOGRAM
     Route: 048

REACTIONS (2)
  - Condition aggravated [Unknown]
  - Pyrexia [Unknown]
